FAERS Safety Report 4293039-0 (Version None)
Quarter: 2004Q1

REPORT INFORMATION
  Report Type: 
  Country: None (occurrence: None)
  Receive Date: 20040210
  Receipt Date: 20040204
  Transmission Date: 20041129
  Serious: Yes (Hospitalization, Other)
  Sender: FDA-Public Use
  Company Number: 2004UW01286

PATIENT
  Age: 45 Year
  Sex: Male
  Weight: 89.3586 kg

DRUGS (2)
  1. SEROQUEL [Suspect]
     Dosage: 300 MG PO
     Route: 048
     Dates: start: 20040116, end: 20040116
  2. CLARITIN-D [Suspect]
     Indication: MULTIPLE ALLERGIES
     Dosage: 120 MG PO
     Route: 048
     Dates: start: 20030101, end: 20040101

REACTIONS (11)
  - BRONCHOSPASM [None]
  - DIZZINESS [None]
  - DYSPNOEA [None]
  - FALL [None]
  - HEADACHE [None]
  - MEDICATION ERROR [None]
  - MUSCULAR WEAKNESS [None]
  - NAUSEA [None]
  - PHARMACEUTICAL PRODUCT COMPLAINT [None]
  - SYNCOPE [None]
  - VOMITING [None]
